FAERS Safety Report 4744028-0 (Version None)
Quarter: 2005Q3

REPORT INFORMATION
  Report Type: 
  Country: None (occurrence: None)
  Receive Date: 20050809
  Receipt Date: 20050727
  Transmission Date: 20060218
  Serious: Yes (Hospitalization, Other)
  Sender: FDA-Public Use
  Company Number: PHNU2004DE03173

PATIENT
  Age: 78 Year
  Sex: Female

DRUGS (1)
  1. VISUDYNE [Suspect]
     Indication: MACULAR DEGENERATION
     Dates: start: 20040521, end: 20040521

REACTIONS (6)
  - BLINDNESS [None]
  - BONE PAIN [None]
  - DISEASE PROGRESSION [None]
  - INFUSION RELATED REACTION [None]
  - METAMORPHOPSIA [None]
  - RETINAL HAEMORRHAGE [None]
